FAERS Safety Report 8791199 (Version 2)
Quarter: 2012Q4

REPORT INFORMATION
  Report Type: Spontaneous
  Country: None (occurrence: None)
  Receive Date: 20120911
  Receipt Date: 20120917
  Transmission Date: 20130627
  Serious: Yes (Hospitalization)
  Sender: FDA-Public Use
  Company Number: AUR-APL-2012-03780

PATIENT
  Age: 44 Year
  Weight: 85 kg

DRUGS (2)
  1. QUETIAPINE [Suspect]
     Indication: DRUG USE FOR UNKNOWN INDICATION
     Dosage: 600 mg (300 mg, 2 in 1 D), Oral
     Dates: start: 2012, end: 2012
  2. QUETIAPINE [Suspect]
     Indication: DRUG USE FOR UNKNOWN INDICATION

REACTIONS (6)
  - Malaise [None]
  - Schizophrenia, paranoid type [None]
  - Condition aggravated [None]
  - Drug therapy changed [None]
  - Treatment noncompliance [None]
  - Product formulation issue [None]
